FAERS Safety Report 25489756 (Version 1)
Quarter: 2025Q2

REPORT INFORMATION
  Report Type: Spontaneous
  Country: US (occurrence: US)
  Receive Date: 20250627
  Receipt Date: 20250627
  Transmission Date: 20250717
  Serious: Yes (Hospitalization)
  Sender: VERTEX
  Company Number: US-VERTEX PHARMACEUTICALS-2025-010254

PATIENT
  Sex: Female

DRUGS (2)
  1. JOURNAVX [Suspect]
     Active Substance: SUZETRIGINE
     Indication: Pain
     Dosage: 50MG SUZETRIGINE, BID
     Route: 048
     Dates: start: 2025, end: 202506
  2. JOURNAVX [Suspect]
     Active Substance: SUZETRIGINE
     Dosage: 50MG SUZETRIGINE, QD
     Route: 048
     Dates: start: 202506

REACTIONS (2)
  - Hospitalisation [Unknown]
  - Off label use [Unknown]

NARRATIVE: CASE EVENT DATE: 20250101
